FAERS Safety Report 6018643-0 (Version None)
Quarter: 2008Q4

REPORT INFORMATION
  Report Type: 
  Country: None (occurrence: None)
  Receive Date: 20081223
  Receipt Date: 20081216
  Transmission Date: 20090506
  Serious: Yes (Hospitalization, Other)
  Sender: FDA-Public Use
  Company Number: CA-PFIZER INC-2008091077

PATIENT

DRUGS (8)
  1. LYRICA [Suspect]
     Route: 048
     Dates: start: 20080201
  2. CYMBALTA [Concomitant]
  3. NEXIUM [Concomitant]
  4. OXYCODONE HCL [Concomitant]
  5. CESAMET [Concomitant]
     Dosage: UNK
     Dates: start: 20080201
  6. LOMOTIL [Concomitant]
     Dosage: UNK
     Dates: start: 20020201
  7. SEROQUEL [Concomitant]
     Dosage: UNK
     Dates: start: 20080901
  8. CIPRALEX [Concomitant]
     Dosage: UNK
     Dates: start: 20080901

REACTIONS (9)
  - ANXIETY [None]
  - CLOSTRIDIUM DIFFICILE COLITIS [None]
  - COLITIS [None]
  - DEPRESSION [None]
  - GASTROINTESTINAL DISORDER [None]
  - GASTROINTESTINAL HAEMORRHAGE [None]
  - MEMORY IMPAIRMENT [None]
  - PNEUMONIA [None]
  - VOMITING [None]
